FAERS Safety Report 14917647 (Version 1)
Quarter: 2018Q2

REPORT INFORMATION
  Report Type: Spontaneous
  Country: FR (occurrence: FR)
  Receive Date: 20180521
  Receipt Date: 20180521
  Transmission Date: 20180711
  Serious: Yes (Other)
  Sender: FDA-Public Use
  Company Number: FR-MERCK KGAA-2048102

PATIENT
  Age: 49 Year
  Sex: Female

DRUGS (1)
  1. NOVOTHYROX [Suspect]
     Active Substance: LEVOTHYROXINE SODIUM
     Indication: PRODUCT USED FOR UNKNOWN INDICATION
     Dates: start: 201704, end: 201710

REACTIONS (15)
  - Monocyte count increased [None]
  - Depressed mood [None]
  - Headache [Recovering/Resolving]
  - Memory impairment [None]
  - Anxiety [None]
  - Muscle spasms [Recovering/Resolving]
  - Cerebrovascular accident [None]
  - Fatigue [Recovering/Resolving]
  - Disturbance in attention [None]
  - Loss of personal independence in daily activities [Recovering/Resolving]
  - Decreased interest [None]
  - Asthenia [Recovering/Resolving]
  - Somnolence [None]
  - Loss of libido [Recovering/Resolving]
  - Self esteem decreased [None]

NARRATIVE: CASE EVENT DATE: 2017
